FAERS Safety Report 5639417-6 (Version None)
Quarter: 2008Q1

REPORT INFORMATION
  Report Type: 
  Country: None (occurrence: None)
  Receive Date: 20080226
  Receipt Date: 20080214
  Transmission Date: 20080703
  Serious: Yes (Hospitalization)
  Sender: FDA-Public Use
  Company Number: GB-GILEAD-2008-0015410

PATIENT
  Sex: Female
  Weight: 55 kg

DRUGS (2)
  1. TRUVADA [Suspect]
     Indication: HIV INFECTION
     Route: 048
     Dates: start: 20060411
  2. NEVIRAPINE [Suspect]
     Route: 048

REACTIONS (2)
  - DEPRESSION [None]
  - OVERDOSE [None]
